FAERS Safety Report 8158680-3 (Version None)
Quarter: 2012Q1

REPORT INFORMATION
  Report Type: 
  Country: None (occurrence: None)
  Receive Date: 20120223
  Receipt Date: 20120210
  Transmission Date: 20120608
  Serious: Yes (Hospitalization, Other)
  Sender: FDA-Public Use
  Company Number: US-ELI_LILLY_AND_COMPANY-US201112005241

PATIENT
  Sex: Female

DRUGS (12)
  1. LEXAPRO [Concomitant]
     Dosage: 20 MG, QD
  2. INSULIN [Concomitant]
     Dosage: 20 IU, QD
  3. ATENOLOL [Concomitant]
  4. FORTEO [Suspect]
     Indication: OSTEOPOROSIS
     Dosage: 20 UG, QD
     Dates: start: 20111101
  5. CRESTOR [Concomitant]
     Dosage: 50 MG, EACH EVENING
  6. ZANAFLEX [Concomitant]
     Dosage: 1 DF, EVERY 8 HRS
  7. SYNTHROID [Concomitant]
     Dosage: 50 MG, UNK
  8. METFORMIN HCL [Concomitant]
     Dosage: 500 MG, EACH EVENING
  9. VERAPAMIL [Concomitant]
     Dosage: 180 MG, QD
  10. TOPAMAX [Concomitant]
     Dosage: 100 MG, QOD
  11. AMBIEN [Concomitant]
     Dosage: 10 MG, QD
  12. FOSAMAX [Concomitant]

REACTIONS (5)
  - HEART RATE IRREGULAR [None]
  - CARDIAC DISCOMFORT [None]
  - FALL [None]
  - CARDIAC DISORDER [None]
  - OESOPHAGITIS [None]
